FAERS Safety Report 17195376 (Version 2)
Quarter: 2020Q2

REPORT INFORMATION
  Report Type: Spontaneous
  Country: US (occurrence: US)
  Receive Date: 20191224
  Receipt Date: 20200401
  Transmission Date: 20200713
  Serious: Yes (Other)
  Sender: FDA-Public Use
  Company Number: US-APOTEX-2019AP026495

PATIENT
  Sex: Male

DRUGS (6)
  1. SPINRAZA [Concomitant]
     Active Substance: NUSINERSEN
     Indication: OSTEOPOROSIS
  2. ZOLEDRONIC ACID INJECTION [Suspect]
     Active Substance: ZOLEDRONIC ACID
     Indication: OSTEOPOROSIS
     Dosage: 0.025 MG/KG, FIRST DOSE AT THE TIME OF REACTION
     Route: 040
  3. PAMIDRONATE [Suspect]
     Active Substance: PAMIDRONATE DISODIUM
     Indication: SPINAL MUSCULAR ATROPHY
     Dosage: 1.5 MG/KG/DOSE (MAXIMUM DOSE: 60 MG, EVERY THREE MONTHS)
     Route: 040
  4. ZOLEDRONIC ACID INJECTION [Suspect]
     Active Substance: ZOLEDRONIC ACID
     Indication: SPINAL MUSCULAR ATROPHY
     Dosage: 0.05 MG/KG, EVERY SIX MONTHS
     Route: 040
  5. SPINRAZA [Concomitant]
     Active Substance: NUSINERSEN
     Indication: SPINAL MUSCULAR ATROPHY
     Dosage: UNK
     Route: 065
     Dates: start: 2017
  6. PAMIDRONATE [Suspect]
     Active Substance: PAMIDRONATE DISODIUM
     Indication: OSTEOPOROSIS

REACTIONS (1)
  - Atypical femur fracture [Recovered/Resolved]
